FAERS Safety Report 4867215-X (Version None)
Quarter: 2005Q4

REPORT INFORMATION
  Report Type: 
  Country: None (occurrence: None)
  Receive Date: 20051222
  Receipt Date: 20051117
  Transmission Date: 20060501
  Serious: Yes (Hospitalization)
  Sender: FDA-Public Use
  Company Number: 2005160461

PATIENT
  Age: 60 Year
  Sex: Male

DRUGS (4)
  1. CELEBREX [Suspect]
     Indication: NON-SMALL CELL LUNG CANCER
  2. PACLITAXEL [Suspect]
     Indication: NON-SMALL CELL LUNG CANCER
  3. TAXOL [Suspect]
     Indication: NON-SMALL CELL LUNG CANCER
  4. ALL OTHER NON-THERAPEUTIC PRODUCTS [Suspect]
     Indication: NON-SMALL CELL LUNG CANCER

REACTIONS (4)
  - CHEST PAIN [None]
  - LOBAR PNEUMONIA [None]
  - OXYGEN SATURATION DECREASED [None]
  - TACHYCARDIA [None]
